FAERS Safety Report 10450554 (Version 1)
Quarter: 2014Q3

REPORT INFORMATION
  Report Type: Spontaneous
  Country: DE (occurrence: DE)
  Receive Date: 20140912
  Receipt Date: 20140912
  Transmission Date: 20150326
  Serious: Yes (Death, Other)
  Sender: FDA-Public Use
  Company Number: PHHY2014DE115256

PATIENT
  Age: 48 Year
  Sex: Female
  Weight: 62 kg

DRUGS (7)
  1. OXAZEPAM. [Suspect]
     Active Substance: OXAZEPAM
  2. ETOMIDATE. [Concomitant]
     Active Substance: ETOMIDATE
  3. ATRACURIUM [Concomitant]
     Active Substance: ATRACURIUM
  4. NORDAZEPAM [Suspect]
     Active Substance: NORDAZEPAM
  5. MEPERIDINE [Suspect]
     Active Substance: MEPERIDINE
  6. METOPROLOL [Suspect]
     Active Substance: METOPROLOL
  7. DIPHENHYDRAMINE [Suspect]
     Active Substance: DIPHENHYDRAMINE

REACTIONS (5)
  - Completed suicide [Fatal]
  - Toxicity to various agents [Fatal]
  - Brain oedema [Unknown]
  - Intentional overdose [Unknown]
  - Pulmonary oedema [Unknown]
